FAERS Safety Report 4968214-X (Version None)
Quarter: 2006Q2

REPORT INFORMATION
  Report Type: 
  Country: None (occurrence: None)
  Receive Date: 20060405
  Receipt Date: 20060325
  Transmission Date: 20061013
  Serious: Yes (Other)
  Sender: FDA-Public Use
  Company Number: 2006014960

PATIENT
  Age: 39 Year
  Sex: Female
  Weight: 80 kg

DRUGS (10)
  1. ZOLOFT [Suspect]
     Indication: ANXIETY
     Dosage: 75 MG (1 IN 1 D), ORAL
     Route: 048
     Dates: start: 20030301
  2. ZOLOFT [Suspect]
     Indication: DEPRESSION
     Dosage: 75 MG (1 IN 1 D), ORAL
     Route: 048
     Dates: start: 20030301
  3. ZELDOX (CAPSULES) (ZIPRASIDONE) [Suspect]
     Indication: PSYCHOTIC DISORDER
  4. ZYPREXA [Suspect]
     Indication: PSYCHOTIC DISORDER
  5. TEGRETOL [Concomitant]
  6. CITODON (CODEINE PHOSPHATE, PARACETAMOL) [Concomitant]
  7. DIAZEPAM [Concomitant]
  8. STILNOCT (ZOLPIDEM TARTRATE) [Concomitant]
  9. PROPAVAN (PROPIOMAZINE MALEATE) [Concomitant]
  10. NITRAZEPAM [Concomitant]

REACTIONS (9)
  - ABNORMAL BEHAVIOUR [None]
  - ANTIDEPRESSANT DRUG LEVEL INCREASED [None]
  - ANXIETY [None]
  - DRUG INEFFECTIVE [None]
  - DRUG TOXICITY [None]
  - PSYCHOTIC DISORDER [None]
  - SLEEP DISORDER [None]
  - SUICIDAL IDEATION [None]
  - SUICIDE ATTEMPT [None]
